FAERS Safety Report 14120179 (Version 1)
Quarter: 2017Q4

REPORT INFORMATION
  Report Type: Spontaneous
  Country: GB (occurrence: GB)
  Receive Date: 20171024
  Receipt Date: 20171024
  Transmission Date: 20180321
  Serious: Yes (Hospitalization, Disabling, Other)
  Sender: FDA-Public Use
  Company Number: GB-ABBVIE-17P-167-2140363-00

PATIENT
  Age: 46 Year
  Sex: Male

DRUGS (4)
  1. SODIUM VALPROATE [Suspect]
     Active Substance: VALPROATE SODIUM
     Route: 065
  2. RISPERIDONE. [Concomitant]
     Active Substance: RISPERIDONE
     Indication: PRODUCT USED FOR UNKNOWN INDICATION
  3. SODIUM VALPROATE [Suspect]
     Active Substance: VALPROATE SODIUM
     Indication: WITHDRAWAL SYNDROME
     Route: 065
     Dates: start: 201604
  4. DIAZEPAM. [Concomitant]
     Active Substance: DIAZEPAM
     Indication: PRODUCT USED FOR UNKNOWN INDICATION
     Dates: end: 201604

REACTIONS (12)
  - Dizziness [Not Recovered/Not Resolved]
  - Dysphonia [Not Recovered/Not Resolved]
  - Malaise [Not Recovered/Not Resolved]
  - Fall [Unknown]
  - Oedema peripheral [Recovered/Resolved]
  - Seizure [Not Recovered/Not Resolved]
  - Cough [Not Recovered/Not Resolved]
  - Pain [Not Recovered/Not Resolved]
  - Asthenia [Not Recovered/Not Resolved]
  - Schwannoma [Not Recovered/Not Resolved]
  - Alopecia [Not Recovered/Not Resolved]
  - Nightmare [Not Recovered/Not Resolved]
